FAERS Safety Report 21281141 (Version 1)
Quarter: 2022Q3

REPORT INFORMATION
  Report Type: Spontaneous
  Country: KE (occurrence: KE)
  Receive Date: 20220901
  Receipt Date: 20220901
  Transmission Date: 20221027
  Serious: Yes (Other)
  Sender: FDA-Public Use
  Company Number: KE-SUN PHARMACEUTICAL INDUSTRIES LTD-2022RR-352745

PATIENT
  Age: 31 Year
  Sex: Female

DRUGS (3)
  1. NIFEDIPINE [Suspect]
     Active Substance: NIFEDIPINE
     Indication: Blood pressure abnormal
     Dosage: UNK
     Route: 065
  2. METHYLDOPA [Suspect]
     Active Substance: METHYLDOPA
     Indication: Blood pressure abnormal
     Dosage: UNK
     Route: 065
  3. PREDNISONE [Suspect]
     Active Substance: PREDNISONE
     Indication: Focal segmental glomerulosclerosis
     Dosage: 10 MILLIGRAM, UNK
     Route: 065

REACTIONS (4)
  - Premature delivery [Unknown]
  - Exposure during pregnancy [Unknown]
  - Preterm premature rupture of membranes [Unknown]
  - Drug ineffective [Unknown]
